FAERS Safety Report 8239349-3 (Version None)
Quarter: 2012Q1

REPORT INFORMATION
  Report Type: 
  Country: None (occurrence: None)
  Receive Date: 20120326
  Receipt Date: 20120313
  Transmission Date: 20120608
  Serious: Yes (Death)
  Sender: FDA-Public Use
  Company Number: 215427

PATIENT
  Age: 51 Year
  Sex: Female

DRUGS (12)
  1. SPIRIVA [Concomitant]
  2. MUCOMYST [Concomitant]
  3. AUGMENTIN '125' [Concomitant]
  4. INNOHEP [Suspect]
     Indication: SUPERIOR VENA CAVA SYNDROME
     Dosage: 0.5 ML (1 IN 1 D),SUBCUTANEOUS
     Route: 058
     Dates: start: 20110428, end: 20110611
  5. PROTIFAR (PROTIFAR) [Concomitant]
  6. FLUTICASONE PROPIONATE/SALMETEROL [Concomitant]
  7. NEXIUM IV [Concomitant]
  8. AMOXICILLINI (AMOXI-CLAVULANICO) [Concomitant]
  9. TOLEXINE (DOXYCYCLINE) [Concomitant]
  10. SPASFON (SPASFON /00765801/) [Concomitant]
  11. TARCEVA [Suspect]
     Indication: LUNG ADENOCARCINOMA
     Dosage: 150 MG,ORAL
     Route: 048
     Dates: start: 20110422, end: 20110611
  12. CELLUVISC (CARMELLOSE SODIUM) [Concomitant]

REACTIONS (6)
  - HAEMOPTYSIS [None]
  - INCORRECT DRUG ADMINISTRATION DURATION [None]
  - HAEMOGLOBIN DECREASED [None]
  - NEOPLASM PROGRESSION [None]
  - BRONCHIAL NEOPLASM [None]
  - OFF LABEL USE [None]
